FAERS Safety Report 15270634 (Version 2)
Quarter: 2018Q3

REPORT INFORMATION
  Report Type: Spontaneous
  Country: US (occurrence: US)
  Receive Date: 20180813
  Receipt Date: 20180823
  Transmission Date: 20181010
  Serious: No
  Sender: FDA-Public Use
  Company Number: US-JNJFOC-20180730173

PATIENT
  Age: 26 Year
  Sex: Female
  Weight: 60.33 kg

DRUGS (2)
  1. WOMENS ROGAINE [Suspect]
     Active Substance: MINOXIDIL
     Route: 061
  2. WOMENS ROGAINE [Suspect]
     Active Substance: MINOXIDIL
     Indication: ALOPECIA
     Route: 061
     Dates: start: 201806, end: 201806

REACTIONS (3)
  - Alopecia [Recovered/Resolved]
  - Hair injury [Recovered/Resolved]
  - Skin burning sensation [Recovered/Resolved]

NARRATIVE: CASE EVENT DATE: 201806
